FAERS Safety Report 24634706 (Version 1)
Quarter: 2024Q4

REPORT INFORMATION
  Report Type: Spontaneous
  Country: IT (occurrence: IT)
  Receive Date: 20241119
  Receipt Date: 20241119
  Transmission Date: 20250115
  Serious: Yes (Death, Hospitalization)
  Sender: SANDOZ
  Company Number: IT-ACARPIAPRO-240082 - IT-MINISAL02-1008528

PATIENT
  Age: 15 Year
  Sex: Female

DRUGS (4)
  1. COLCHICINE [Suspect]
     Active Substance: COLCHICINE
     Indication: Product used for unknown indication
     Dosage: CLINICAL REPORT SHOWS THAT THE REACTION OBSERVED IS DUE TO OVERDOSE.THE PATIENT IN THE EVENING OF 09
     Route: 048
     Dates: start: 20241009
  2. DICLOFENAC SODIUM [Suspect]
     Active Substance: DICLOFENAC SODIUM
     Indication: Product used for unknown indication
     Dosage: CLINICAL REPORT SHOWS THAT THE REACTION OBSERVED IS DUE TO OVERDOSE.
     Route: 048
     Dates: start: 20241009
  3. OLANZAPINE [Suspect]
     Active Substance: OLANZAPINE
     Indication: Product used for unknown indication
     Dosage: CLINICAL REPORT SHOWS THAT THE REACTION OBSERVED IS DUE TO OVERDOSE.
     Route: 065
     Dates: start: 20241009
  4. ACETAMINOPHEN [Suspect]
     Active Substance: ACETAMINOPHEN
     Indication: Product used for unknown indication
     Dosage: 16 TABLET OF PARACETAMOL 1 GR.CLINICAL REPORT SHOWS THAT THE REACTION OBSERVED IS DUE TO OVERDOSE.
     Route: 048
     Dates: start: 20241009

REACTIONS (2)
  - Death [Fatal]
  - Overdose [Fatal]

NARRATIVE: CASE EVENT DATE: 20241009
